FAERS Safety Report 24164169 (Version 2)
Quarter: 2024Q3

REPORT INFORMATION
  Report Type: Spontaneous
  Country: NL (occurrence: NL)
  Receive Date: 20240801
  Receipt Date: 20240816
  Transmission Date: 20241017
  Serious: Yes (Life-Threatening, Hospitalization)
  Sender: TEVA
  Company Number: NL-TEVA-VS-3226204

PATIENT
  Age: 62 Year
  Sex: Female

DRUGS (3)
  1. PREDNISONE [Suspect]
     Active Substance: PREDNISONE
     Indication: Myasthenic syndrome
     Dosage: HIGH DOSE
     Route: 065
  2. AMIFAMPRIDINE [Concomitant]
     Active Substance: AMIFAMPRIDINE
     Indication: Myasthenic syndrome
     Route: 065
  3. IMMUNE GLOBULIN [Concomitant]
     Indication: Myasthenic syndrome
     Route: 042

REACTIONS (1)
  - Drug ineffective [Unknown]
